FAERS Safety Report 6497231-6 (Version None)
Quarter: 2009Q4

REPORT INFORMATION
  Report Type: 
  Country: None (occurrence: None)
  Receive Date: 20091215
  Receipt Date: 20090706
  Transmission Date: 20100525
  Serious: No
  Sender: FDA-Public Use
  Company Number: A0795509A

PATIENT
  Age: 77 Year
  Sex: Male

DRUGS (3)
  1. AVODART [Suspect]
     Indication: BENIGN PROSTATIC HYPERPLASIA
     Dosage: 10MG PER DAY
     Route: 048
     Dates: start: 20090601
  2. METFORMIN HCL [Concomitant]
  3. ASPIRIN [Concomitant]

REACTIONS (4)
  - ASTHENIA [None]
  - DIZZINESS POSTURAL [None]
  - FEELING DRUNK [None]
  - GAIT DISTURBANCE [None]
